FAERS Safety Report 9851419 (Version 2)
Quarter: 2014Q1

REPORT INFORMATION
  Report Type: Report from Study
  Country: US (occurrence: US)
  Receive Date: 20140129
  Receipt Date: 20140129
  Transmission Date: 20141002
  Serious: Yes (Hospitalization)
  Sender: FDA-Public Use
  Company Number: US-ROCHE-1331555

PATIENT
  Sex: Female

DRUGS (10)
  1. XOLAIR [Suspect]
     Indication: ASTHMA
     Dosage: LAST DOSE 13/JAN/2014
     Route: 065
     Dates: start: 201304
  2. VENTOLIN INHALER [Concomitant]
     Route: 065
  3. ADVAIR [Concomitant]
     Route: 065
  4. SPIRIVA [Concomitant]
     Route: 065
  5. LISINOPRIL [Concomitant]
     Indication: HYPERTENSION
     Route: 065
  6. ALBUTEROL [Concomitant]
     Route: 065
  7. XOPHENEX [Concomitant]
     Route: 065
  8. LIDOCAINE [Concomitant]
  9. NEXIUM [Concomitant]
     Route: 065
  10. EPIPEN [Concomitant]

REACTIONS (8)
  - Pulmonary congestion [Recovered/Resolved]
  - Oesophageal spasm [Unknown]
  - Vasodilatation [Unknown]
  - Carotid artery stenosis [Unknown]
  - Pneumonia aspiration [Recovered/Resolved]
  - Dysphagia [Unknown]
  - Dyspnoea [Not Recovered/Not Resolved]
  - Asthma [Not Recovered/Not Resolved]
